FAERS Safety Report 18159419 (Version 1)
Quarter: 2020Q3

REPORT INFORMATION
  Report Type: Spontaneous
  Country: JP (occurrence: JP)
  Receive Date: 20200817
  Receipt Date: 20200817
  Transmission Date: 20201103
  Serious: Yes (Other)
  Sender: FDA-Public Use
  Company Number: NVSC2020JP227055

PATIENT
  Age: 11 Year
  Sex: Female
  Weight: 35 kg

DRUGS (3)
  1. CYCLOSPORINE. [Suspect]
     Active Substance: CYCLOSPORINE
     Indication: DERMATITIS ATOPIC
     Dosage: 3 MG/KG, QD (IN 2 DIVIDED DOSES)
     Route: 065
  2. CORTRIL [Concomitant]
     Active Substance: HYDROCORTISONE
     Indication: PRODUCT USED FOR UNKNOWN INDICATION
     Dosage: 10 MG, QD
     Route: 048
  3. CYCLOSPORINE. [Suspect]
     Active Substance: CYCLOSPORINE
     Indication: NEURODERMATITIS
     Dosage: 2.5 MG/KG, QD
     Route: 065

REACTIONS (4)
  - Haemorrhage [Unknown]
  - Product use in unapproved indication [Unknown]
  - Gingival swelling [Unknown]
  - Product use issue [Unknown]
